FAERS Safety Report 4608122-7 (Version None)
Quarter: 2005Q2

REPORT INFORMATION
  Report Type: 
  Country: None (occurrence: None)
  Receive Date: 20050301
  Receipt Date: 20040116
  Transmission Date: 20051028
  Serious: Yes (Life-Threatening)
  Sender: FDA-Public Use
  Company Number: BDI-005753

PATIENT
  Age: 7 Year
  Sex: Female
  Weight: 31 kg

DRUGS (4)
  1. ISOVUE-300 [Suspect]
     Indication: COMPUTERISED TOMOGRAM
     Dosage: IV
     Route: 042
     Dates: start: 20040114, end: 20040114
  2. ISOVUE-300 [Suspect]
     Indication: VOMITING
     Dosage: IV
     Route: 042
     Dates: start: 20040114, end: 20040114
  3. DUONEB [Concomitant]
  4. PEPCID [Concomitant]

REACTIONS (1)
  - ANAPHYLACTIC REACTION [None]
